FAERS Safety Report 5787746-8 (Version None)
Quarter: 2008Q2

REPORT INFORMATION
  Report Type: 
  Country: None (occurrence: None)
  Receive Date: 20080624
  Receipt Date: 20080624
  Transmission Date: 20081010
  Serious: No
  Sender: FDA-Public Use
  Company Number: None

PATIENT
  Age: 7 Year
  Sex: Male
  Weight: 17.2367 kg

DRUGS (1)
  1. FOCALIN [Suspect]
     Indication: ATTENTION DEFICIT/HYPERACTIVITY DISORDER
     Dosage: 10MG DAILY PO
     Route: 048
     Dates: start: 20071010, end: 20071220

REACTIONS (1)
  - ALOPECIA [None]
